FAERS Safety Report 7826589-8 (Version None)
Quarter: 2011Q4

REPORT INFORMATION
  Report Type: 
  Country: None (occurrence: None)
  Receive Date: 20111020
  Receipt Date: 20110919
  Transmission Date: 20120403
  Serious: No
  Sender: FDA-Public Use
  Company Number: US-MYLANLABS-2011S1019807

PATIENT
  Age: 70 Year
  Sex: Male

DRUGS (2)
  1. TAMSULOSIN HCL [Suspect]
     Indication: BENIGN PROSTATIC HYPERPLASIA
     Route: 048
     Dates: start: 20110301, end: 20110701
  2. TAMSULOSIN HCL [Suspect]
     Route: 048
     Dates: start: 20110915

REACTIONS (2)
  - BENIGN PROSTATIC HYPERPLASIA [None]
  - DRUG INEFFECTIVE [None]
